FAERS Safety Report 10245107 (Version 1)
Quarter: 2014Q2

REPORT INFORMATION
  Report Type: Spontaneous
  Country: GB (occurrence: GB)
  Receive Date: 20140618
  Receipt Date: 20140618
  Transmission Date: 20141212
  Serious: Yes (Other)
  Sender: FDA-Public Use
  Company Number: PHHY2014GB074723

PATIENT
  Sex: Male

DRUGS (4)
  1. STALEVO [Suspect]
     Indication: PARKINSON^S DISEASE
     Dosage: 200 MG, 6QD
  2. REQUIP [Suspect]
     Indication: PARKINSON^S DISEASE
     Dosage: 12 MG, DAILY
  3. REQUIP [Suspect]
     Dosage: UNK UKN, DOSE REDUCED
  4. APOMORPHINE [Suspect]
     Indication: PARKINSON^S DISEASE
     Dosage: UNK UKN, UNK

REACTIONS (3)
  - Poor quality sleep [Not Recovered/Not Resolved]
  - Dementia [Not Recovered/Not Resolved]
  - Somnolence [Not Recovered/Not Resolved]
